FAERS Safety Report 7524714-X (Version None)
Quarter: 2011Q2

REPORT INFORMATION
  Report Type: 
  Country: None (occurrence: None)
  Receive Date: 20110602
  Receipt Date: 20110602
  Transmission Date: 20111010
  Serious: Yes (Life-Threatening)
  Sender: FDA-Public Use
  Company Number: None

PATIENT
  Age: 69 Year
  Sex: Female
  Weight: 88.905 kg

DRUGS (1)
  1. ACTOS [Suspect]
     Indication: BLOOD GLUCOSE INCREASED
     Dosage: ONCE DAILY PO
     Route: 048
     Dates: start: 20091201, end: 20110529

REACTIONS (6)
  - ANGINA PECTORIS [None]
  - SINUS DISORDER [None]
  - WEIGHT INCREASED [None]
  - FATIGUE [None]
  - BACK PAIN [None]
  - DIZZINESS [None]
